FAERS Safety Report 8022294-6 (Version None)
Quarter: 2012Q1

REPORT INFORMATION
  Report Type: 
  Country: None (occurrence: None)
  Receive Date: 20120104
  Receipt Date: 20111227
  Transmission Date: 20120608
  Serious: Yes (Other)
  Sender: FDA-Public Use
  Company Number: PHHY2011FR113221

PATIENT
  Sex: Female

DRUGS (1)
  1. CERTICAN [Suspect]
     Indication: LIVER TRANSPLANT
     Dosage: UNK
     Dates: start: 20110201, end: 20111121

REACTIONS (3)
  - PAIN IN EXTREMITY [None]
  - OEDEMA PERIPHERAL [None]
  - LYMPHOEDEMA [None]
